FAERS Safety Report 17926206 (Version 1)
Quarter: 2020Q2

REPORT INFORMATION
  Report Type: Spontaneous
  Country: NG (occurrence: NG)
  Receive Date: 20200622
  Receipt Date: 20200622
  Transmission Date: 20200714
  Serious: Yes (Death)
  Sender: FDA-Public Use
  Company Number: NG-PFIZER INC-2020237323

PATIENT
  Age: 8 Year
  Sex: Male

DRUGS (1)
  1. VFEND [Suspect]
     Active Substance: VORICONAZOLE
     Indication: COVID-19
     Dosage: UNK (2 DOSES)

REACTIONS (3)
  - Product use in unapproved indication [Fatal]
  - Off label use [Fatal]
  - Death [Fatal]
